FAERS Safety Report 9616283 (Version 1)
Quarter: 2013Q4

REPORT INFORMATION
  Report Type: Spontaneous
  Country: US (occurrence: None)
  Receive Date: 20131010
  Receipt Date: 20131010
  Transmission Date: 20140711
  Serious: Yes (Hospitalization)
  Sender: FDA-Public Use
  Company Number: None

PATIENT
  Age: 17 Year
  Sex: Male
  Weight: 44.5 kg

DRUGS (4)
  1. CYTARABINE [Suspect]
     Route: 037
     Dates: end: 20130903
  2. DAUNORUBICIN [Suspect]
     Dates: end: 20130905
  3. METHOTREXATE [Suspect]
     Route: 037
     Dates: end: 20131003
  4. PEG-L-ASPARAGINASE (K-H) [Suspect]
     Dates: end: 20130909

REACTIONS (3)
  - Pyrexia [None]
  - Neutropenia [None]
  - Hepatic failure [None]
